FAERS Safety Report 6809797-4 (Version None)
Quarter: 2010Q2

REPORT INFORMATION
  Report Type: 
  Country: None (occurrence: None)
  Receive Date: 20100630
  Receipt Date: 20100617
  Transmission Date: 20101027
  Serious: Yes (Other)
  Sender: FDA-Public Use
  Company Number: IT-WATSON-2010-08316

PATIENT
  Age: 74 Year
  Sex: Male

DRUGS (4)
  1. PREDNISONE TAB [Suspect]
     Indication: ANTIINFLAMMATORY THERAPY
     Dosage: 40 MG, DAILY
     Route: 048
  2. COLCHICINE (WATSON LABORATORIES) [Suspect]
     Indication: GOUTY ARTHRITIS
  3. DICLOFENAC (WATSON LABORATORIES) [Suspect]
     Indication: GOUTY ARTHRITIS
  4. AMIODARONE [Suspect]
     Indication: CARDIAC DISORDER
     Dosage: 200 MG, DAILY

REACTIONS (9)
  - ABDOMINAL PAIN [None]
  - ASCITES [None]
  - DIARRHOEA [None]
  - DIVERTICULUM [None]
  - DRUG INTERACTION [None]
  - LARGE INTESTINE PERFORATION [None]
  - LEUKOCYTOSIS [None]
  - NON-CARDIAC CHEST PAIN [None]
  - RENAL FAILURE ACUTE [None]
